FAERS Safety Report 10390699 (Version 2)
Quarter: 2014Q4

REPORT INFORMATION
  Report Type: Spontaneous
  Country: US (occurrence: US)
  Receive Date: 20140818
  Receipt Date: 20141119
  Transmission Date: 20150528
  Serious: Yes (Other)
  Sender: FDA-Public Use
  Company Number: US-SA-2014SA099888

PATIENT
  Age: 59 Year
  Sex: Male
  Weight: 90.7 kg

DRUGS (9)
  1. AUVI-Q [Suspect]
     Active Substance: EPINEPHRINE
     Indication: RESPIRATORY DISORDER
     Route: 065
     Dates: start: 20140717
  2. AUVI-Q [Suspect]
     Active Substance: EPINEPHRINE
     Indication: ANAPHYLAXIS TREATMENT
     Route: 065
     Dates: start: 20140717
  3. OMEPRAZOLE. [Concomitant]
     Active Substance: OMEPRAZOLE
  4. LEVOTHYROXINE [Concomitant]
     Active Substance: LEVOTHYROXINE
  5. VIIBRYD [Concomitant]
     Active Substance: VILAZODONE HYDROCHLORIDE
  6. DIPHENHYDRAMINE [Concomitant]
     Active Substance: DIPHENHYDRAMINE
  7. AUVI-Q [Suspect]
     Active Substance: EPINEPHRINE
     Indication: ERYTHEMA
     Route: 065
     Dates: start: 20140717
  8. BUSPIRONE [Concomitant]
     Active Substance: BUSPIRONE HYDROCHLORIDE
  9. ATORVASTATIN [Concomitant]
     Active Substance: ATORVASTATIN

REACTIONS (3)
  - Needle issue [Unknown]
  - Expired product administered [Unknown]
  - Drug ineffective [Unknown]
